FAERS Safety Report 19652021 (Version 3)
Quarter: 2021Q4

REPORT INFORMATION
  Report Type: Spontaneous
  Country: US (occurrence: US)
  Receive Date: 20210803
  Receipt Date: 20211119
  Transmission Date: 20220303
  Serious: Yes (Hospitalization)
  Sender: FDA-Public Use
  Company Number: US-GW PHARMA-202107USGW03714

PATIENT

DRUGS (6)
  1. EPIDIOLEX [Suspect]
     Active Substance: CANNABIDIOL
     Indication: Epilepsy
     Dosage: 7.55 MG/KG/DAY, 170 MILLIGRAM, BID
     Route: 048
     Dates: start: 20190520
  2. EPIDIOLEX [Suspect]
     Active Substance: CANNABIDIOL
     Dosage: 16.66 MG/KG/DAY, 170 MILLIGRAM, BID
     Route: 048
     Dates: start: 20190520
  3. LAMOTRIGINE [Concomitant]
     Active Substance: LAMOTRIGINE
     Indication: Product used for unknown indication
     Dosage: UNK
     Route: 048
  4. TRAZODONE [Concomitant]
     Active Substance: TRAZODONE HYDROCHLORIDE
     Indication: Product used for unknown indication
     Dosage: UNK
     Route: 048
  5. FAMOTIDINE [Concomitant]
     Active Substance: FAMOTIDINE
     Indication: Product used for unknown indication
     Dosage: UNK
     Route: 065
  6. MONTELUKAST [Concomitant]
     Active Substance: MONTELUKAST SODIUM
     Indication: Product used for unknown indication
     Dosage: UNK
     Route: 065

REACTIONS (5)
  - Respiratory syncytial virus infection [Recovered/Resolved]
  - Illness [Unknown]
  - Oxygen consumption decreased [Unknown]
  - Cough [Unknown]
  - Product use in unapproved indication [Unknown]
